FAERS Safety Report 8115893-4 (Version None)
Quarter: 2012Q1

REPORT INFORMATION
  Report Type: 
  Country: None (occurrence: None)
  Receive Date: 20120206
  Receipt Date: 20120131
  Transmission Date: 20120608
  Serious: No
  Sender: FDA-Public Use
  Company Number: US-PFIZER INC-2012027816

PATIENT
  Age: 72 Year
  Sex: Male

DRUGS (1)
  1. ARGATROBAN [Suspect]
     Dosage: UNK
     Route: 042
     Dates: start: 20120130

REACTIONS (1)
  - INTERNATIONAL NORMALISED RATIO INCREASED [None]
